FAERS Safety Report 7897361-8 (Version None)
Quarter: 2011Q4

REPORT INFORMATION
  Report Type: 
  Country: None (occurrence: None)
  Receive Date: 20111028
  Receipt Date: 20110502
  Transmission Date: 20120403
  Serious: Yes (Other)
  Sender: FDA-Public Use
  Company Number: PHHY2011US37123

PATIENT
  Age: 44 Year
  Sex: Male

DRUGS (3)
  1. TRILEPTAL [Suspect]
     Dosage: (300 MG, 3 TABLETS) IN MORNING AND (300 MG, 5 TABLETS) IN EVENING
  2. TRILEPTAL [Suspect]
     Dosage: 900 MG (600 MG ONE AND 300 MG ONE) IN MORNING AND IN EVENING 1500 MG (600 MG TWO AND 300 MG ONE)
  3. LAMICTAL [Concomitant]

REACTIONS (2)
  - RASH GENERALISED [None]
  - PRURITUS [None]
